FAERS Safety Report 18705175 (Version 2)
Quarter: 2021Q1

REPORT INFORMATION
  Report Type: Spontaneous
  Country: US (occurrence: US)
  Receive Date: 20210106
  Receipt Date: 20210112
  Transmission Date: 20210419
  Serious: No
  Sender: FDA-Public Use
  Company Number: US-009507513-2101USA000482

PATIENT

DRUGS (2)
  1. PREGNYL [Suspect]
     Active Substance: CHORIOGONADOTROPIN ALFA
     Dosage: 10,000 (UNIT NOT REPORTED) VIAL
  2. STERILE DILUENT (WATER) [Suspect]
     Active Substance: WATER
     Dosage: UNK

REACTIONS (4)
  - Product quality issue [Unknown]
  - No adverse event [Unknown]
  - Poor quality product administered [Unknown]
  - Circumstance or information capable of leading to medication error [Unknown]
